FAERS Safety Report 5806337-3 (Version None)
Quarter: 2008Q3

REPORT INFORMATION
  Report Type: 
  Country: None (occurrence: None)
  Receive Date: 20080702
  Receipt Date: 20070507
  Transmission Date: 20090109
  Serious: No
  Sender: FDA-Public Use
  Company Number: 2007-BP-05999BP

PATIENT
  Sex: Male

DRUGS (2)
  1. MIRAPEX [Suspect]
     Indication: RESTLESS LEGS SYNDROME
     Dosage: 2 MG (0.5MG QID),PO ; 4 MG (0.5MG 8X/DAY),PO
     Route: 048
     Dates: start: 20050101, end: 20070101
  2. MIRAPEX [Suspect]
     Indication: RESTLESS LEGS SYNDROME
     Dosage: 2 MG (0.5MG QID),PO ; 4 MG (0.5MG 8X/DAY),PO
     Route: 048
     Dates: start: 20070101

REACTIONS (3)
  - ARTHRALGIA [None]
  - FATIGUE [None]
  - SUDDEN ONSET OF SLEEP [None]
